FAERS Safety Report 24606995 (Version 1)
Quarter: 2024Q4

REPORT INFORMATION
  Report Type: Report from Study
  Country: US (occurrence: US)
  Receive Date: 20241112
  Receipt Date: 20241112
  Transmission Date: 20250115
  Serious: Yes (Other)
  Sender: ALEXION PHARMACEUTICALS
  Company Number: US-AstraZeneca-CH-00727368A

PATIENT

DRUGS (10)
  1. OSIMERTINIB [Suspect]
     Active Substance: OSIMERTINIB
     Indication: Lung neoplasm malignant
  2. OSIMERTINIB [Suspect]
     Active Substance: OSIMERTINIB
  3. OSIMERTINIB [Suspect]
     Active Substance: OSIMERTINIB
  4. OSIMERTINIB [Suspect]
     Active Substance: OSIMERTINIB
  5. CLARITIN [Concomitant]
     Active Substance: LORATADINE
  6. CLARITIN [Concomitant]
     Active Substance: LORATADINE
     Route: 065
  7. MEDROL [Concomitant]
     Active Substance: METHYLPREDNISOLONE
  8. MEDROL [Concomitant]
     Active Substance: METHYLPREDNISOLONE
     Route: 065
  9. ZYRTEC [Concomitant]
     Active Substance: CETIRIZINE HYDROCHLORIDE
  10. ZYRTEC [Concomitant]
     Active Substance: CETIRIZINE HYDROCHLORIDE
     Route: 065

REACTIONS (4)
  - Sinusitis [Unknown]
  - Rash [Unknown]
  - Nasal inflammation [Unknown]
  - Epistaxis [Unknown]
